FAERS Safety Report 11906663 (Version 2)
Quarter: 2016Q1

REPORT INFORMATION
  Report Type: Spontaneous
  Country: FR (occurrence: FR)
  Receive Date: 20160111
  Receipt Date: 20160218
  Transmission Date: 20160526
  Serious: Yes (Hospitalization, Other)
  Sender: FDA-Public Use
  Company Number: FR-GLAXOSMITHKLINE-FR2016GSK000412

PATIENT
  Age: 71 Year
  Sex: Male

DRUGS (12)
  1. AUGMENTIN [Suspect]
     Active Substance: AMOXICILLIN\CLAVULANATE POTASSIUM
     Indication: LUNG DISORDER
     Dosage: UNK
     Route: 048
     Dates: start: 20150605, end: 20150610
  2. AMIKACIN SULFATE. [Suspect]
     Active Substance: AMIKACIN SULFATE
     Indication: LUNG DISORDER
     Dosage: UNK
     Route: 042
     Dates: start: 20150609, end: 20150609
  3. ZYVOXID [Concomitant]
     Active Substance: LINEZOLID
     Indication: BACTERIAL INFECTION
     Dosage: UNK
     Dates: start: 20150617, end: 20150622
  4. PARACETAMOL [Concomitant]
     Active Substance: ACETAMINOPHEN
     Dosage: UNK
  5. LOVENOX [Concomitant]
     Active Substance: ENOXAPARIN SODIUM
     Dosage: UNK
  6. TAZOCILLINE [Suspect]
     Active Substance: PIPERACILLIN SODIUM\TAZOBACTAM SODIUM
     Indication: LUNG DISORDER
     Dosage: UNK
     Route: 042
     Dates: start: 20150609, end: 20150712
  7. ZOPHREN [Concomitant]
     Active Substance: ONDANSETRON
     Dosage: UNK
     Dates: end: 20150709
  8. VANCOMYCINE SANDOZ [Concomitant]
     Active Substance: VANCOMYCIN
     Indication: BACTERIAL INFECTION
     Dosage: UNK
     Dates: start: 20150622, end: 20150626
  9. EUPRESSYL [Concomitant]
     Active Substance: URAPIDIL
     Indication: HYPERTENSION
     Dosage: UNK
     Dates: start: 20150609, end: 20150727
  10. ZINNAT [Suspect]
     Active Substance: CEFUROXIME AXETIL
     Indication: LUNG DISORDER
     Dosage: UNK
     Route: 048
     Dates: start: 20150525, end: 20150605
  11. TEMERIT [Concomitant]
     Active Substance: NEBIVOLOL
     Indication: HYPERTENSION
     Dosage: UNK
     Dates: start: 20150609, end: 20150727
  12. AMLOR [Concomitant]
     Active Substance: AMLODIPINE BESYLATE
     Indication: HYPERTENSION
     Dosage: UNK
     Dates: start: 20150609, end: 20150726

REACTIONS (1)
  - Renal failure [Recovering/Resolving]

NARRATIVE: CASE EVENT DATE: 20150609
